FAERS Safety Report 12387797 (Version 1)
Quarter: 2016Q2

REPORT INFORMATION
  Report Type: Spontaneous
  Country: CR (occurrence: CR)
  Receive Date: 20160520
  Receipt Date: 20160520
  Transmission Date: 20160815
  Serious: Yes (Other)
  Sender: FDA-Public Use
  Company Number: CR-ROCHE-1761200

PATIENT
  Age: 47 Year
  Sex: Female
  Weight: 59 kg

DRUGS (5)
  1. MABTHERA [Suspect]
     Active Substance: RITUXIMAB
     Indication: CASTLEMAN^S DISEASE
     Dosage: SINGLE DOSE
     Route: 042
     Dates: start: 20150817, end: 20150817
  2. PREDNISONE. [Concomitant]
     Active Substance: PREDNISONE
     Dosage: SINGLE DOSE
     Route: 048
     Dates: start: 20150817, end: 20150817
  3. OMEPRAZOLE. [Concomitant]
     Active Substance: OMEPRAZOLE
     Dosage: SINGLE DOSE
     Route: 048
     Dates: start: 20150817, end: 20150817
  4. VINCRISTINE [Concomitant]
     Active Substance: VINCRISTINE
     Dosage: SINGLE DOSE
     Route: 042
     Dates: start: 20150817, end: 20150817
  5. CYCLOPHOSPHAMIDE. [Concomitant]
     Active Substance: CYCLOPHOSPHAMIDE
     Dosage: SINGLE DOSE
     Route: 042
     Dates: start: 20150817, end: 20150817

REACTIONS (4)
  - Off label use [Unknown]
  - Leukoencephalopathy [Recovered/Resolved]
  - Seizure [Recovered/Resolved]
  - Dysphagia [Recovered/Resolved]

NARRATIVE: CASE EVENT DATE: 20150819
